FAERS Safety Report 4837698-X (Version None)
Quarter: 2005Q4

REPORT INFORMATION
  Report Type: 
  Country: None (occurrence: None)
  Receive Date: 20051128
  Receipt Date: 20050824
  Transmission Date: 20060501
  Serious: Yes (Hospitalization, Disabling)
  Sender: FDA-Public Use
  Company Number: US-MERCK-0508USA04255

PATIENT
  Age: 69 Year
  Sex: Male
  Weight: 63 kg

DRUGS (4)
  1. VIOXX [Suspect]
     Indication: OSTEOARTHRITIS
     Route: 048
     Dates: start: 20000101, end: 20040201
  2. VIOXX [Suspect]
     Route: 048
     Dates: start: 19990101, end: 20000101
  3. VIOXX [Suspect]
     Indication: ARTHRALGIA
     Route: 048
     Dates: start: 20000101, end: 20040201
  4. VIOXX [Suspect]
     Route: 048
     Dates: start: 19990101, end: 20000101

REACTIONS (4)
  - ADVERSE EVENT [None]
  - DIARRHOEA [None]
  - HAEMORRHAGE INTRACRANIAL [None]
  - TRANSIENT ISCHAEMIC ATTACK [None]
